FAERS Safety Report 10217013 (Version 2)
Quarter: 2014Q2

REPORT INFORMATION
  Report Type: Spontaneous
  Country: US (occurrence: US)
  Receive Date: 20140604
  Receipt Date: 20140624
  Transmission Date: 20141212
  Serious: No
  Sender: FDA-Public Use
  Company Number: CHPA2014US007488

PATIENT
  Sex: Female

DRUGS (6)
  1. NICOTINELL GUM [Suspect]
     Indication: SMOKING CESSATION THERAPY
     Route: 048
  2. NICOTINE [Suspect]
     Route: 048
  3. ATENOLOL [Concomitant]
     Indication: HYPERTENSION
     Dosage: 50 MG, QD
  4. LOSARTAN [Concomitant]
     Indication: HYPERTENSION
     Dosage: 100 MG, QD
  5. ADVAIR [Concomitant]
     Indication: DYSPNOEA
     Dosage: UNK
     Dates: start: 2009, end: 201403
  6. SYMBICORT [Concomitant]
     Indication: DYSPNOEA
     Dosage: UNK
     Dates: start: 201403

REACTIONS (4)
  - Nocturia [Not Recovered/Not Resolved]
  - Malaise [Unknown]
  - Dry mouth [Unknown]
  - Drug ineffective [Unknown]
